FAERS Safety Report 14646623 (Version 2)
Quarter: 2018Q2

REPORT INFORMATION
  Report Type: Spontaneous
  Country: DE (occurrence: DE)
  Receive Date: 20180316
  Receipt Date: 20180507
  Transmission Date: 20180711
  Serious: Yes (Death, Hospitalization, Other)
  Sender: FDA-Public Use
  Company Number: PHHY2016DE186059

PATIENT
  Age: 52 Year
  Sex: Female
  Weight: 66 kg

DRUGS (28)
  1. 5-FLUOROURACIL [Suspect]
     Active Substance: FLUOROURACIL
     Dosage: 625 MG, Q2W
     Route: 040
     Dates: start: 20160428, end: 20160428
  2. AVASTIN [Suspect]
     Active Substance: BEVACIZUMAB
     Indication: COLORECTAL CANCER
     Dosage: 330 MG, Q2W
     Route: 042
     Dates: start: 20150428
  3. FOLINIC ACID [Suspect]
     Active Substance: LEUCOVORIN
     Dosage: 600 MG, Q2W
     Route: 042
     Dates: start: 20151126, end: 20151126
  4. OXALIPLATIN. [Suspect]
     Active Substance: OXALIPLATIN
     Dosage: 110 MG, Q2W
     Route: 042
     Dates: start: 20150814, end: 20150925
  5. AVASTIN [Suspect]
     Active Substance: BEVACIZUMAB
     Dosage: 280 MG, Q2W
     Route: 042
     Dates: start: 20160107
  6. FOLINIC ACID [Suspect]
     Active Substance: LEUCOVORIN
     Dosage: 265 MG, Q2W
     Route: 042
     Dates: start: 20150626, end: 20150730
  7. FOLINIC ACID [Suspect]
     Active Substance: LEUCOVORIN
     Dosage: 255 MG, Q2W
     Route: 042
     Dates: start: 20150813, end: 20151008
  8. FOLINIC ACID [Suspect]
     Active Substance: LEUCOVORIN
     Dosage: 590 MG, Q2W
     Route: 042
     Dates: start: 20160908, end: 20160908
  9. OXALIPLATIN. [Suspect]
     Active Substance: OXALIPLATIN
     Indication: COLORECTAL CANCER
     Dosage: 140 MG, Q2W (110-140)
     Route: 042
     Dates: start: 20150428, end: 20150609
  10. IRINOTECAN [Suspect]
     Active Substance: IRINOTECAN
     Dosage: 222 MG, Q2W
     Route: 042
     Dates: start: 20150713, end: 20150730
  11. AVASTIN [Suspect]
     Active Substance: BEVACIZUMAB
     Dosage: 230 MG, Q2W
     Route: 042
     Dates: start: 20160630
  12. FOLINIC ACID [Suspect]
     Active Substance: LEUCOVORIN
     Indication: COLORECTAL CANCER
     Dosage: 335 MG, Q2W
     Route: 042
     Dates: start: 20150428, end: 20150526
  13. FOLINIC ACID [Suspect]
     Active Substance: LEUCOVORIN
     Dosage: 635 MG, Q2W
     Route: 042
     Dates: start: 20151210, end: 20160121
  14. CLEXANE [Concomitant]
     Active Substance: ENOXAPARIN SODIUM
     Indication: THROMBOSIS PROPHYLAXIS
     Dosage: 40 MG, QD
     Route: 058
     Dates: start: 20150427
  15. OXALIPLATIN. [Suspect]
     Active Substance: OXALIPLATIN
     Dosage: 115 MG, Q2W
     Route: 042
     Dates: start: 20150627, end: 20150731
  16. 5-FLUOROURACIL [Suspect]
     Active Substance: FLUOROURACIL
     Dosage: 600 MG, Q2W
     Route: 040
     Dates: start: 20151126, end: 20151126
  17. IRINOTECAN [Suspect]
     Active Substance: IRINOTECAN
     Dosage: 210 MG, Q2W
     Route: 042
     Dates: start: 20150813, end: 20151008
  18. 5-FLUOROURACIL [Suspect]
     Active Substance: FLUOROURACIL
     Indication: COLORECTAL CANCER
     Dosage: 5345 MG, Q2W
     Route: 042
     Dates: start: 20150428, end: 20150430
  19. 5-FLUOROURACIL [Suspect]
     Active Substance: FLUOROURACIL
     Dosage: 3550 MG, Q2W
     Route: 042
     Dates: start: 20160908, end: 20160909
  20. IRINOTECAN [Suspect]
     Active Substance: IRINOTECAN
     Dosage: 270 MG, QW
     Route: 042
     Dates: start: 20150608, end: 20150608
  21. IRINOTECAN [Suspect]
     Active Substance: IRINOTECAN
     Dosage: 220 MG, Q2W
     Route: 042
     Dates: start: 20150626, end: 20150626
  22. AVASTIN [Suspect]
     Active Substance: BEVACIZUMAB
     Dosage: 230 MG, Q2W
     Route: 042
     Dates: start: 20160908
  23. FOLINIC ACID [Suspect]
     Active Substance: LEUCOVORIN
     Dosage: 330 MG, Q2W
     Route: 042
     Dates: start: 20150608, end: 20150608
  24. GRANOCYTE [Concomitant]
     Active Substance: LENOGRASTIM
     Indication: NEUTROPENIA
     Dosage: 34 MIU, QD
     Route: 058
     Dates: start: 20150615, end: 20150810
  25. IRINOTECAN [Suspect]
     Active Substance: IRINOTECAN
     Dosage: UNK UNK, Q2W
     Route: 042
     Dates: end: 20150630
  26. IRINOTECAN [Suspect]
     Active Substance: IRINOTECAN
     Dosage: 215 MG, Q2W
     Route: 042
     Dates: start: 20160908, end: 20160908
  27. FOLINIC ACID [Suspect]
     Active Substance: LEUCOVORIN
     Dosage: UNK (DOSAGES BETWEEN 255 MG AND 645 MG)
     Route: 042
     Dates: start: 20160630
  28. IRINOTECAN [Suspect]
     Active Substance: IRINOTECAN
     Indication: COLORECTAL CANCER
     Dosage: 275 MG, Q2W
     Route: 042
     Dates: start: 20150428, end: 20150526

REACTIONS (10)
  - Metastases to central nervous system [Fatal]
  - Inappropriate schedule of drug administration [Fatal]
  - Metastases to meninges [Fatal]
  - Cystitis radiation [Fatal]
  - Vomiting [Fatal]
  - Off label use [Fatal]
  - Cystitis haemorrhagic [Fatal]
  - Proteinuria [Fatal]
  - Mucosal inflammation [Fatal]
  - Bladder tamponade [Fatal]

NARRATIVE: CASE EVENT DATE: 20160107
